FAERS Safety Report 18609095 (Version 2)
Quarter: 2021Q4

REPORT INFORMATION
  Report Type: Report from Study
  Country: FR (occurrence: FR)
  Receive Date: 20201214
  Receipt Date: 20211015
  Transmission Date: 20220303
  Serious: Yes (Other)
  Sender: FDA-Public Use
  Company Number: FR-CLOVIS ONCOLOGY-CLO-2020-002284

PATIENT

DRUGS (5)
  1. RUCAPARIB [Suspect]
     Active Substance: RUCAPARIB
     Indication: Neoplasm
     Dosage: UNK
     Route: 048
     Dates: start: 20191102
  2. RUCAPARIB [Suspect]
     Active Substance: RUCAPARIB
     Dosage: 600 MILLIGRAM
     Route: 048
     Dates: end: 20200129
  3. ATEZOLIZUMAB [Suspect]
     Active Substance: ATEZOLIZUMAB
     Indication: Neoplasm
     Dosage: UNK
     Route: 042
     Dates: start: 20191102
  4. ATEZOLIZUMAB [Suspect]
     Active Substance: ATEZOLIZUMAB
     Dosage: 1200 MILLIGRAM
     Route: 042
     Dates: start: 20200129, end: 20200218
  5. ATEZOLIZUMAB [Suspect]
     Active Substance: ATEZOLIZUMAB
     Dosage: UNK
     Route: 042
     Dates: start: 20200401

REACTIONS (1)
  - Uveitis [Recovered/Resolved]

NARRATIVE: CASE EVENT DATE: 20200129
